FAERS Safety Report 6685118-5 (Version None)
Quarter: 2010Q2

REPORT INFORMATION
  Report Type: 
  Country: None (occurrence: None)
  Receive Date: 20100416
  Receipt Date: 20090819
  Transmission Date: 20101027
  Serious: No
  Sender: FDA-Public Use
  Company Number: US-BRISTOL-MYERS SQUIBB COMPANY-14748610

PATIENT

DRUGS (1)
  1. CARBOPLATIN [Suspect]
     Route: 013

REACTIONS (1)
  - ADVERSE DRUG REACTION [None]
